FAERS Safety Report 13555377 (Version 1)
Quarter: 2017Q2

REPORT INFORMATION
  Report Type: Spontaneous
  Country: US (occurrence: US)
  Receive Date: 20170517
  Receipt Date: 20170517
  Transmission Date: 20170830
  Serious: No
  Sender: FDA-Public Use
  Company Number: US-ASCENT PHARMACEUTICALS, INC.-2020886

PATIENT
  Age: 59 Year
  Sex: Male
  Weight: 85.91 kg

DRUGS (1)
  1. DUTASTERIDE. [Suspect]
     Active Substance: DUTASTERIDE
     Indication: BENIGN PROSTATIC HYPERPLASIA
     Route: 048
     Dates: end: 20170303

REACTIONS (3)
  - Dyspnoea [Recovered/Resolved]
  - Anger [Recovered/Resolved]
  - Chest discomfort [Recovered/Resolved]
